FAERS Safety Report 5818945-4 (Version None)
Quarter: 2008Q3

REPORT INFORMATION
  Report Type: 
  Country: None (occurrence: None)
  Receive Date: 20080723
  Receipt Date: 20080716
  Transmission Date: 20090109
  Serious: Yes (Hospitalization, Other)
  Sender: FDA-Public Use
  Company Number: CA-BAYER-200828103NA

PATIENT
  Age: 31 Year
  Sex: Female

DRUGS (1)
  1. YASMIN [Suspect]
     Indication: ENDOMETRIOSIS
     Route: 048
     Dates: start: 20061206, end: 20080221

REACTIONS (10)
  - BLINDNESS TRANSIENT [None]
  - BREAST MASS [None]
  - DEPRESSION [None]
  - HORMONE LEVEL ABNORMAL [None]
  - HOT FLUSH [None]
  - LYMPHADENOPATHY [None]
  - MIGRAINE [None]
  - NAUSEA [None]
  - UNEVALUABLE EVENT [None]
  - VAGINAL HAEMORRHAGE [None]
